FAERS Safety Report 4862360-7 (Version None)
Quarter: 2005Q4

REPORT INFORMATION
  Report Type: 
  Country: None (occurrence: None)
  Receive Date: 20051221
  Receipt Date: 20051209
  Transmission Date: 20060501
  Serious: Yes (Other)
  Sender: FDA-Public Use
  Company Number: CA-BRISTOL-MYERS SQUIBB COMPANY-13218086

PATIENT
  Age: 80 Year
  Sex: Female

DRUGS (11)
  1. TEQUIN [Suspect]
     Route: 048
  2. AMIODARONE HCL [Concomitant]
  3. ASPIRIN [Concomitant]
  4. AZITHROMYCIN [Concomitant]
  5. CEFUROXIME [Concomitant]
  6. FLOVENT [Concomitant]
  7. HEPARIN [Concomitant]
  8. HYDROXYUREA [Concomitant]
  9. INSULIN [Concomitant]
  10. PLAVIX [Concomitant]
  11. SALMETEROL [Concomitant]

REACTIONS (1)
  - HYPERGLYCAEMIA [None]
